FAERS Safety Report 23823485 (Version 1)
Quarter: 2024Q2

REPORT INFORMATION
  Report Type: Report from Study
  Country: US (occurrence: US)
  Receive Date: 20240507
  Receipt Date: 20240507
  Transmission Date: 20240716
  Serious: Yes (Other)
  Sender: FDA-Public Use
  Company Number: US-BEH-2024171846

PATIENT
  Age: 42 Year
  Sex: Male
  Weight: 69.388 kg

DRUGS (1)
  1. HIZENTRA [Suspect]
     Active Substance: HUMAN IMMUNOGLOBULIN G
     Indication: Hereditary angioedema
     Dosage: 10 G, QW
     Route: 058
     Dates: start: 20240411, end: 20240413

REACTIONS (9)
  - Porphyria acute [Recovered/Resolved]
  - Gait inability [Recovered/Resolved]
  - Off label use [Unknown]
  - Skin burning sensation [Recovered/Resolved]
  - Joint injury [Recovered/Resolved]
  - Joint injury [Recovered/Resolved]
  - Neck pain [Recovered/Resolved]
  - Headache [Recovered/Resolved]
  - Abdominal pain upper [Recovered/Resolved]

NARRATIVE: CASE EVENT DATE: 20240411
